FAERS Safety Report 16349765 (Version 2)
Quarter: 2019Q2

REPORT INFORMATION
  Report Type: Spontaneous
  Country: PL (occurrence: PL)
  Receive Date: 20190523
  Receipt Date: 20190613
  Transmission Date: 20190711
  Serious: Yes (Hospitalization)
  Sender: FDA-Public Use
  Company Number: PL-GILEAD-2019-0409671

PATIENT
  Age: 70 Year
  Sex: Male

DRUGS (4)
  1. MIFLONID [Concomitant]
     Active Substance: BUDESONIDE
     Dosage: 2X DAILY
  2. GENVOYA [Suspect]
     Active Substance: COBICISTAT\ELVITEGRAVIR\EMTRICITABINE\TENOFOVIR ALAFENAMIDE FUMARATE
     Indication: HIV INFECTION
     Dosage: UNK
     Route: 065
  3. ULTIBRO BREEZHALER [Concomitant]
     Active Substance: GLYCOPYRRONIUM\INDACATEROL
     Dosage: 1 DOSAGE FORM, QD
  4. THEOSPIREX [THEOPHYLLINE] [Concomitant]
     Dosage: 1 DOSAGE FORM, BID

REACTIONS (11)
  - Blood urea increased [Unknown]
  - Weight decreased [Unknown]
  - Lipodystrophy acquired [Not Recovered/Not Resolved]
  - Blood creatinine increased [Unknown]
  - Myalgia [Not Recovered/Not Resolved]
  - Malaise [Unknown]
  - Blood glucose increased [Recovered/Resolved]
  - Fat tissue increased [Not Recovered/Not Resolved]
  - Blood pressure increased [Unknown]
  - Vertigo [Not Recovered/Not Resolved]
  - Hypoaesthesia [Unknown]

NARRATIVE: CASE EVENT DATE: 201905
